FAERS Safety Report 25221364 (Version 1)
Quarter: 2025Q2

REPORT INFORMATION
  Report Type: Spontaneous
  Country: GB (occurrence: GB)
  Receive Date: 20250421
  Receipt Date: 20250421
  Transmission Date: 20250716
  Serious: Yes (Other)
  Sender: ROCHE
  Company Number: GB-ROCHE-10000256214

PATIENT
  Sex: Female

DRUGS (2)
  1. OCREVUS [Suspect]
     Active Substance: OCRELIZUMAB
     Indication: Product used for unknown indication
     Dosage: LAST TREATMENT DATE- 21/OCT/2024
     Route: 042
     Dates: start: 20201126
  2. OCREVUS [Suspect]
     Active Substance: OCRELIZUMAB
     Route: 065
     Dates: start: 20241021

REACTIONS (3)
  - Off label use [Unknown]
  - Maternal exposure before pregnancy [Unknown]
  - Abortion spontaneous [Unknown]
